FAERS Safety Report 20848590 (Version 3)
Quarter: 2022Q2

REPORT INFORMATION
  Report Type: Spontaneous
  Country: US (occurrence: US)
  Receive Date: 20220519
  Receipt Date: 20220624
  Transmission Date: 20220721
  Serious: No
  Sender: FDA-Public Use
  Company Number: US-GSKCCFUS-Case-01372467_AE-79333

PATIENT
  Sex: Female

DRUGS (2)
  1. BENLYSTA [Suspect]
     Active Substance: BELIMUMAB
     Indication: Overlap syndrome
     Dosage: 200 MG, WE
     Route: 058
     Dates: start: 202112
  2. BENLYSTA [Suspect]
     Active Substance: BELIMUMAB
     Indication: Pulmonary arterial hypertension

REACTIONS (6)
  - Injection site injury [Unknown]
  - Wrong technique in device usage process [Unknown]
  - Exposure via skin contact [Unknown]
  - Accidental exposure to product [Unknown]
  - Product dose omission issue [Unknown]
  - Product complaint [Unknown]
